FAERS Safety Report 7861045-2 (Version None)
Quarter: 2011Q4

REPORT INFORMATION
  Report Type: 
  Country: None (occurrence: None)
  Receive Date: 20111027
  Receipt Date: 20110823
  Transmission Date: 20120403
  Serious: Yes (Hospitalization)
  Sender: FDA-Public Use
  Company Number: JP-GLAXOSMITHKLINE-B0742458A

PATIENT
  Sex: Male

DRUGS (7)
  1. LITHIUM CARBONATE [Concomitant]
     Indication: BIPOLAR DISORDER
     Dosage: 300MG PER DAY
     Route: 048
  2. LEVOTHYROXINE SODIUM [Concomitant]
     Indication: HYPOTHYROIDISM
     Dosage: 50MG PER DAY
     Route: 048
  3. ZYPREXA [Concomitant]
     Indication: BIPOLAR DISORDER
     Dosage: 2.5MG PER DAY
     Route: 048
     Dates: start: 20110524, end: 20110801
  4. NITRAZEPAM [Concomitant]
     Indication: INSOMNIA
     Dosage: 5MG PER DAY
     Route: 048
     Dates: start: 20110801
  5. UNASYN [Concomitant]
     Indication: URINARY TRACT INFECTION
     Dosage: 1125MG PER DAY
     Route: 048
     Dates: start: 20110801, end: 20110804
  6. LAMICTAL [Suspect]
     Indication: BIPOLAR DISORDER
     Dosage: 25MG PER DAY
     Route: 048
     Dates: start: 20110708, end: 20110808
  7. CHINESE MEDICINE [Concomitant]
     Indication: CONSTIPATION
     Dosage: 9G PER DAY
     Route: 048
     Dates: end: 20110801

REACTIONS (12)
  - ALANINE AMINOTRANSFERASE INCREASED [None]
  - ORAL MUCOSA EROSION [None]
  - WHITE BLOOD CELL COUNT INCREASED [None]
  - GENERALISED ERYTHEMA [None]
  - RASH [None]
  - STEVENS-JOHNSON SYNDROME [None]
  - EYE DISCHARGE [None]
  - C-REACTIVE PROTEIN INCREASED [None]
  - DRUG RASH WITH EOSINOPHILIA AND SYSTEMIC SYMPTOMS [None]
  - PYREXIA [None]
  - ASPARTATE AMINOTRANSFERASE INCREASED [None]
  - SKIN EROSION [None]
